FAERS Safety Report 23662553 (Version 1)
Quarter: 2024Q1

REPORT INFORMATION
  Report Type: Spontaneous
  Country: GB (occurrence: GB)
  Receive Date: 20240322
  Receipt Date: 20240322
  Transmission Date: 20240410
  Serious: Yes (Other)
  Sender: FDA-Public Use
  Company Number: None

PATIENT
  Age: 65 Year
  Sex: Male
  Weight: 103 kg

DRUGS (20)
  1. DOXAZOSIN [Suspect]
     Active Substance: DOXAZOSIN MESYLATE
     Indication: Product used for unknown indication
     Dosage: 2 MILLIGRAM, QD
     Route: 065
     Dates: start: 20240228
  2. AMITRIPTYLINE HYDROCHLORIDE [Concomitant]
     Active Substance: AMITRIPTYLINE HYDROCHLORIDE
     Dosage: 2 DOSAGE FORM, QD (AT NIGHT)
     Route: 065
     Dates: start: 20231204
  3. ASPIRIN [Concomitant]
     Active Substance: ASPIRIN
     Dosage: 1 DOSAGE FORM, QD
     Route: 065
     Dates: start: 20230710
  4. ATORVASTATIN [Concomitant]
     Active Substance: ATORVASTATIN
     Dosage: 1 DOSAGE FORM, QD
     Route: 065
     Dates: start: 20230710
  5. BECLOMETHASONE DIPROPIONATE [Concomitant]
     Active Substance: BECLOMETHASONE DIPROPIONATE
     Dosage: 4 DOSAGE FORM, BID (INTO EACH NOSTRIL, (MORN..))
     Route: 055
     Dates: start: 20230710
  6. CLOTRIMAZOLE [Concomitant]
     Active Substance: CLOTRIMAZOLE
     Dosage: APPLY 2-3 TIMES/DAY
     Route: 065
     Dates: start: 20230710
  7. FELODIPINE [Concomitant]
     Active Substance: FELODIPINE
     Dosage: 1 DOSAGE FORM, QD
     Route: 065
     Dates: start: 20240129, end: 20240228
  8. FIASP [Concomitant]
     Active Substance: INSULIN ASPART
     Indication: Diabetes mellitus
     Dosage: USE AS DIRECTED BY THE DIABETES TEAM.
     Route: 065
     Dates: start: 20230710
  9. FLUCLOXACILLIN [Concomitant]
     Active Substance: FLUCLOXACILLIN
     Dosage: 1 DOSAGE FORM, QID
     Route: 065
     Dates: start: 20231214, end: 20231221
  10. POTASSIUM BICARBONATE\SODIUM ALGINATE [Concomitant]
     Active Substance: POTASSIUM BICARBONATE\SODIUM ALGINATE
     Dosage: UNK UNK, QID (5ML - 10ML UP TO 4 TIMES/DAY AFTER MEALS AND AT..)
     Route: 065
     Dates: start: 20230710
  11. LOSARTAN [Concomitant]
     Active Substance: LOSARTAN
     Route: 065
     Dates: start: 20231027
  12. CARBAMIDE PEROXIDE [Concomitant]
     Active Substance: CARBAMIDE PEROXIDE
     Dosage: USE AS DIRECTED  (THIS IS A BRAND OF SODIUM CRO...
     Route: 065
     Dates: start: 20230710
  13. NOVORAPID [Concomitant]
     Active Substance: INSULIN ASPART
     Indication: Diabetes mellitus
     Dosage: USE AS DIRECTED BY THE HOSPITAL DIABETIC CLINIC
     Route: 065
     Dates: start: 20230710
  14. NYSTATIN [Concomitant]
     Active Substance: NYSTATIN
     Dosage: 1 MILLILITER, QID
     Route: 065
     Dates: start: 20230710
  15. ACETAMINOPHEN [Concomitant]
     Active Substance: ACETAMINOPHEN
     Dosage: IF WEIGHT GREATER THAN 50KG: TAKE ONE OR TWO TA...
     Route: 065
     Dates: start: 20230710
  16. PROPRANOLOL [Concomitant]
     Active Substance: PROPRANOLOL HYDROCHLORIDE
     Dosage: 1 DOSAGE FORM, TID
     Route: 065
     Dates: start: 20230710
  17. TRAMADOL [Concomitant]
     Active Substance: TRAMADOL\TRAMADOL HYDROCHLORIDE
     Dosage: UNK, QID (1 OR 2 FOUR TIMES A DAY)
     Route: 065
     Dates: start: 20231122
  18. TRESIBA [Concomitant]
     Active Substance: INSULIN DEGLUDEC
     Indication: Diabetes mellitus
     Dosage: USE AS DIRECTED BY DIABETES TEAM
     Route: 065
     Dates: start: 20230710
  19. VENLAFAXINE [Concomitant]
     Active Substance: VENLAFAXINE HYDROCHLORIDE
     Dosage: 2 DOSAGE FORM, BID
     Route: 065
     Dates: start: 20230710
  20. VIAGRA [Concomitant]
     Active Substance: SILDENAFIL CITRATE
     Dosage: USE AS DIRECTED SLS
     Route: 065
     Dates: start: 20230710

REACTIONS (1)
  - Joint swelling [Not Recovered/Not Resolved]
